FAERS Safety Report 25166848 (Version 1)
Quarter: 2025Q2

REPORT INFORMATION
  Report Type: Spontaneous
  Country: PL (occurrence: PL)
  Receive Date: 20250407
  Receipt Date: 20250407
  Transmission Date: 20250717
  Serious: Yes (Hospitalization, Other)
  Sender: NOVARTIS
  Company Number: PL-002147023-NVSC2025PL055725

PATIENT
  Age: 70 Year
  Sex: Female

DRUGS (1)
  1. IMATINIB [Suspect]
     Active Substance: IMATINIB
     Indication: Philadelphia positive chronic myeloid leukaemia
     Route: 065
     Dates: start: 20211123

REACTIONS (10)
  - Neutropenia [Unknown]
  - Pyrexia [Recovered/Resolved]
  - Inflammatory marker increased [Unknown]
  - Tuberculoma [Unknown]
  - Myeloproliferative neoplasm [Unknown]
  - Serum ferritin increased [Unknown]
  - Hypergammaglobulinaemia [Unknown]
  - Anaemia [Unknown]
  - Blood lactate dehydrogenase increased [Unknown]
  - Treatment failure [Unknown]

NARRATIVE: CASE EVENT DATE: 20220218
